FAERS Safety Report 19302186 (Version 1)
Quarter: 2021Q2

REPORT INFORMATION
  Report Type: Report from Study
  Country: US (occurrence: US)
  Receive Date: 20210525
  Receipt Date: 20210525
  Transmission Date: 20210717
  Serious: Yes (Hospitalization)
  Sender: FDA-Public Use
  Company Number: US-ASTRAZENECA-2021A448191

PATIENT
  Sex: Male

DRUGS (5)
  1. IVIG [Concomitant]
     Active Substance: HUMAN IMMUNOGLOBULIN G
  2. CALQUENCE [Suspect]
     Active Substance: ACALABRUTINIB
     Indication: CHRONIC LYMPHOCYTIC LEUKAEMIA
     Route: 048
     Dates: start: 20201123, end: 20210319
  3. GAZYVA [Concomitant]
     Active Substance: OBINUTUZUMAB
  4. VENCLEXTA [Concomitant]
     Active Substance: VENETOCLAX
     Dates: start: 20210507
  5. CRESEMBA [Concomitant]
     Active Substance: ISAVUCONAZONIUM SULFATE

REACTIONS (7)
  - Platelet count decreased [Unknown]
  - Tumour lysis syndrome [Unknown]
  - Blood potassium increased [Unknown]
  - Blood phosphorus increased [Unknown]
  - Haematocrit decreased [Unknown]
  - Blood creatinine increased [Unknown]
  - Haemoglobin decreased [Unknown]
